FAERS Safety Report 11718633 (Version 4)
Quarter: 2016Q1

REPORT INFORMATION
  Report Type: Report from Study
  Country: BE (occurrence: BE)
  Receive Date: 20151110
  Receipt Date: 20160127
  Transmission Date: 20160525
  Serious: Yes (Hospitalization)
  Sender: FDA-Public Use
  Company Number: BE-BEH-2015055485

PATIENT
  Age: 36 Year
  Sex: Female

DRUGS (2)
  1. HIZENTRA [Suspect]
     Active Substance: HUMAN IMMUNOGLOBULIN G
     Dosage: SWITCHED TO HIZENTRA
     Dates: start: 20121207
  2. HIZENTRA [Suspect]
     Active Substance: HUMAN IMMUNOGLOBULIN G
     Indication: NEOPLASM MALIGNANT
     Route: 058

REACTIONS (2)
  - Hip arthroplasty [Unknown]
  - Device related infection [Unknown]

NARRATIVE: CASE EVENT DATE: 20151231
